FAERS Safety Report 11638477 (Version 1)
Quarter: 2015Q4

REPORT INFORMATION
  Report Type: Spontaneous
  Country: JP (occurrence: JP)
  Receive Date: 20151016
  Receipt Date: 20151016
  Transmission Date: 20160304
  Serious: Yes (Disabling, Other)
  Sender: FDA-Public Use
  Company Number: JP-SUNOVION-2015SUN000503

PATIENT
  Age: 87 Year
  Sex: Female

DRUGS (12)
  1. ARICEPT [Suspect]
     Active Substance: DONEPEZIL HYDROCHLORIDE
     Dosage: UNK
     Route: 048
     Dates: start: 20081124, end: 20150212
  2. MEMARY [Suspect]
     Active Substance: MEMANTINE HYDROCHLORIDE
     Indication: DEMENTIA ALZHEIMER^S TYPE
     Dosage: UNK
     Route: 048
     Dates: start: 20140530, end: 20140619
  3. EVAMYL [Suspect]
     Active Substance: LORMETAZEPAM
     Indication: DEMENTIA ALZHEIMER^S TYPE
     Dosage: UNK
     Route: 048
     Dates: end: 20150212
  4. TETRAMIDE [Concomitant]
     Active Substance: MIANSERIN
     Indication: DEMENTIA ALZHEIMER^S TYPE
     Dosage: UNK
     Route: 048
     Dates: end: 20150212
  5. ESZOPICLONE. [Suspect]
     Active Substance: ESZOPICLONE
     Indication: DEMENTIA ALZHEIMER^S TYPE
     Dosage: 1 MG, HS
     Route: 048
     Dates: end: 20150212
  6. MEMARY [Suspect]
     Active Substance: MEMANTINE HYDROCHLORIDE
     Dosage: UNK
     Route: 048
     Dates: start: 20140620, end: 20140626
  7. ARICEPT [Suspect]
     Active Substance: DONEPEZIL HYDROCHLORIDE
     Indication: DEMENTIA ALZHEIMER^S TYPE
     Dosage: UNK
     Dates: start: 20081110, end: 20081123
  8. MEMARY [Suspect]
     Active Substance: MEMANTINE HYDROCHLORIDE
     Dosage: UNK
     Route: 048
     Dates: start: 20140627, end: 20140703
  9. MEMARY [Suspect]
     Active Substance: MEMANTINE HYDROCHLORIDE
     Dosage: UNK
     Route: 048
     Dates: start: 20140704, end: 20150212
  10. TRAZODONE [Concomitant]
     Active Substance: TRAZODONE HYDROCHLORIDE
     Indication: DEMENTIA ALZHEIMER^S TYPE
     Dosage: UNK
  11. PYRETHIA [Concomitant]
     Active Substance: PROMETHAZINE HYDROCHLORIDE
     Dosage: UNK
     Route: 048
  12. MAGMITT [Suspect]
     Active Substance: MAGNESIUM OXIDE
     Dosage: UNK
     Route: 048

REACTIONS (3)
  - Fall [Recovered/Resolved with Sequelae]
  - Rib fracture [Recovered/Resolved with Sequelae]
  - Dizziness [Not Recovered/Not Resolved]

NARRATIVE: CASE EVENT DATE: 201410
